FAERS Safety Report 6494926-5 (Version None)
Quarter: 2009Q4

REPORT INFORMATION
  Report Type: 
  Country: None (occurrence: None)
  Receive Date: 20091209
  Receipt Date: 20091125
  Transmission Date: 20100525
  Serious: Yes (Hospitalization)
  Sender: FDA-Public Use
  Company Number: 310002L09ITA

PATIENT
  Age: 38 Year
  Sex: Female

DRUGS (4)
  1. GONAL-F [Suspect]
     Indication: ASSISTED FERTILISATION
  2. CETROTIDE [Suspect]
     Indication: ASSISTED FERTILISATION
  3. OVITRELLE (CHORIOGONADOTROPIN ALFA) [Concomitant]
     Indication: ASSISTED FERTILISATION
  4. PRONTOGEST (PROGESTERONE) [Concomitant]

REACTIONS (10)
  - CAESAREAN SECTION [None]
  - NECROSIS ISCHAEMIC [None]
  - OVARIAN ENLARGEMENT [None]
  - OVARIAN HAEMORRHAGE [None]
  - OVARIAN NECROSIS [None]
  - OVARIAN TORSION [None]
  - PLACENTA PRAEVIA [None]
  - PREGNANCY [None]
  - TWIN PREGNANCY [None]
  - UTERINE TENDERNESS [None]
